FAERS Safety Report 10200482 (Version 1)
Quarter: 2014Q2

REPORT INFORMATION
  Report Type: Other
  Country: US (occurrence: US)
  Receive Date: 20140528
  Receipt Date: 20140528
  Transmission Date: 20141212
  Serious: Yes (Death, Hospitalization)
  Sender: FDA-Public Use
  Company Number: US-LUPIN PHARMACEUTICALS INC.-2014-01013

PATIENT
  Age: 49 Year
  Sex: Female

DRUGS (2)
  1. LISINOPRIL + HYDROCHLOROTHIAZIDE 20 MG/12.5MG [Suspect]
     Indication: PRODUCT USED FOR UNKNOWN INDICATION
     Dosage: 20-25 TABLETS
     Route: 048
  2. METFORMIN [Suspect]
     Indication: PRODUCT USED FOR UNKNOWN INDICATION
     Dosage: 60 TABLETS
     Route: 048

REACTIONS (16)
  - Intentional overdose [Fatal]
  - Lactic acidosis [Fatal]
  - Renal failure acute [Fatal]
  - Hypotension [Fatal]
  - Intentional overdose [None]
  - Nausea [None]
  - Vomiting [None]
  - Diarrhoea [None]
  - Heart rate increased [None]
  - Blood pressure systolic increased [None]
  - Tachypnoea [None]
  - Blood glucose increased [None]
  - Depressed level of consciousness [None]
  - Continuous haemodiafiltration [None]
  - Tricuspid valve incompetence [None]
  - Pulseless electrical activity [None]
